FAERS Safety Report 5385737-2 (Version None)
Quarter: 2007Q3

REPORT INFORMATION
  Report Type: 
  Country: None (occurrence: None)
  Receive Date: 20070712
  Receipt Date: 20070705
  Transmission Date: 20080115
  Serious: Yes (Other)
  Sender: FDA-Public Use
  Company Number: DE-PFIZER INC-2007053917

PATIENT
  Age: 60 Year
  Sex: Male

DRUGS (1)
  1. CABASERIL [Suspect]
     Indication: PARKINSON'S DISEASE
     Dosage: DAILY DOSE:2MG
     Route: 048

REACTIONS (1)
  - AORTIC VALVE INCOMPETENCE [None]
